FAERS Safety Report 8721324 (Version 2)
Quarter: 2012Q4

REPORT INFORMATION
  Report Type: 
  Country: FR (occurrence: FR)
  Receive Date: 20120813
  Receipt Date: 20120925
  Transmission Date: 20130627
  Serious: Yes (Death, Hospitalization)
  Sender: FDA-Public Use
  Company Number: FR-BAXTER-2012BAX013702

PATIENT
  Age: 29 Year
  Sex: Female

DRUGS (6)
  1. ENDOXAN 2000 MG, LYOPHILISAT POUR SOLUTION INJECTABLE [Suspect]
     Indication: BONE MARROW TRANSPLANT
     Route: 042
     Dates: start: 20120403, end: 20120404
  2. ENDOXAN 2000 MG, LYOPHILISAT POUR SOLUTION INJECTABLE [Suspect]
     Route: 042
     Dates: start: 20120603, end: 20120604
  3. THYMOGLOBULINE [Suspect]
     Indication: BONE MARROW TRANSPLANT
     Route: 065
     Dates: start: 20120604, end: 20120606
  4. METHOTREXATE [Suspect]
     Indication: BONE MARROW TRANSPLANT
     Route: 065
     Dates: start: 20120608, end: 20120608
  5. METHOTREXATE [Suspect]
     Route: 065
     Dates: start: 20120610, end: 20120610
  6. METHOTREXATE [Suspect]
     Route: 065
     Dates: start: 20120613, end: 20120613

REACTIONS (3)
  - Hepatomegaly [Recovered/Resolved]
  - Thrombocytopenia [Not Recovered/Not Resolved]
  - Respiratory distress [Fatal]
